FAERS Safety Report 13695909 (Version 1)
Quarter: 2017Q2

REPORT INFORMATION
  Report Type: Spontaneous
  Country: US (occurrence: US)
  Receive Date: 20170628
  Receipt Date: 20170628
  Transmission Date: 20170830
  Serious: No
  Sender: FDA-Public Use
  Company Number: US-ACCORD-049834

PATIENT
  Age: 33 Year
  Weight: 63.5 kg

DRUGS (1)
  1. AMITRIPTYLINE ACCORD [Suspect]
     Active Substance: AMITRIPTYLINE
     Indication: MIGRAINE
     Dosage: DOSE/STRENGTH: 150 MG?ONCE A DAY AT NIGHT TIME?INITAILLY RECEIVED 25 MG PO ONCE A DAY.
     Route: 048
     Dates: start: 201702

REACTIONS (3)
  - Migraine [Unknown]
  - Condition aggravated [Unknown]
  - Off label use [Unknown]
